FAERS Safety Report 9211086 (Version 1)
Quarter: 2013Q2

REPORT INFORMATION
  Report Type: Report from Study
  Country: US (occurrence: US)
  Receive Date: 20130404
  Receipt Date: 20130404
  Transmission Date: 20140414
  Serious: Yes (Other)
  Sender: FDA-Public Use
  Company Number: US-AMGEN-USACT2011019551

PATIENT
  Age: 85 Year
  Sex: Male

DRUGS (3)
  1. DENOSUMAB [Suspect]
     Indication: PROSTATE CANCER
     Dates: end: 20110104
  2. LUPRON [Concomitant]
     Dosage: 30 MG, Q3MO
     Dates: start: 20080215
  3. ACTONEL [Concomitant]
     Dosage: 70 MG, QWK
     Dates: start: 2009

REACTIONS (1)
  - Osteonecrosis of jaw [Not Recovered/Not Resolved]
